FAERS Safety Report 6162044-1 (Version None)
Quarter: 2009Q2

REPORT INFORMATION
  Report Type: 
  Country: None (occurrence: None)
  Receive Date: 20090417
  Receipt Date: 20090417
  Transmission Date: 20091009
  Serious: Yes (Hospitalization)
  Sender: FDA-Public Use
  Company Number: None

PATIENT
  Age: 57 Year
  Sex: Male
  Weight: 105.2345 kg

DRUGS (7)
  1. ERLOTINIB 100 MG TABLET [Suspect]
     Indication: LARYNGEAL CANCER
     Dosage: 100MG, DAILY, ORAL
     Dates: start: 20081027, end: 20090210
  2. BEVACIZUMAB 25MG/ML -16ML, 400 MG VIAL [Suspect]
     Indication: LARYNGEAL CANCER
     Dosage: 10MG/KG, WKS 1,3,5, 7 IV
     Route: 042
     Dates: start: 20081231, end: 20090211
  3. BEVACIZUMAB 400 MG VIAL [Suspect]
     Indication: LARYNGEAL CANCER
     Dosage: 10MG/KG, WKS 1,3,5,7 IV
     Route: 042
     Dates: start: 20081231, end: 20090211
  4. TOPROL-XL [Concomitant]
  5. ROXICET [Concomitant]
  6. IMODIUM [Concomitant]
  7. MAGIC MOUTHWASH [Concomitant]

REACTIONS (2)
  - DEEP VEIN THROMBOSIS [None]
  - DYSPNOEA [None]
